FAERS Safety Report 6178500-6 (Version None)
Quarter: 2009Q2

REPORT INFORMATION
  Report Type: 
  Country: None (occurrence: None)
  Receive Date: 20090430
  Receipt Date: 20090414
  Transmission Date: 20091009
  Serious: Yes (Other)
  Sender: FDA-Public Use
  Company Number: 2009S1005420

PATIENT
  Age: 8 Year
  Sex: Male

DRUGS (1)
  1. LAMOTRIGINE [Suspect]
     Indication: DRUG USE FOR UNKNOWN INDICATION

REACTIONS (6)
  - BALANCE DISORDER [None]
  - BINOCULAR EYE MOVEMENT DISORDER [None]
  - BLEPHAROSPASM [None]
  - EDUCATIONAL PROBLEM [None]
  - MYOCLONUS [None]
  - TREMOR [None]
